FAERS Safety Report 9684714 (Version 2)
Quarter: 2013Q4

REPORT INFORMATION
  Report Type: Spontaneous
  Country: US (occurrence: US)
  Receive Date: 20131112
  Receipt Date: 20131125
  Transmission Date: 20140711
  Serious: Yes (Death, Hospitalization, Other)
  Sender: FDA-Public Use
  Company Number: US-009507513-1311USA002530

PATIENT
  Sex: Female

DRUGS (2)
  1. VYTORIN [Suspect]
     Indication: BLOOD CHOLESTEROL INCREASED
     Route: 048
  2. MK-0000 [Suspect]

REACTIONS (4)
  - Drug prescribing error [Fatal]
  - Loss of consciousness [Fatal]
  - Dyspnoea [Unknown]
  - Oxygen supplementation [Unknown]
